FAERS Safety Report 7291558-6 (Version None)
Quarter: 2011Q1

REPORT INFORMATION
  Report Type: 
  Country: None (occurrence: None)
  Receive Date: 20110214
  Receipt Date: 20110201
  Transmission Date: 20110831
  Serious: Yes (Hospitalization, Disabling, Other)
  Sender: FDA-Public Use
  Company Number: PHHY2011BR08365

PATIENT
  Sex: Female
  Weight: 56 kg

DRUGS (2)
  1. RASILEZ HCT [Suspect]
     Indication: HYPERTENSION
     Dosage: 300/12.5 MG, DAILY
     Route: 048
     Dates: start: 20101215
  2. ACTIVELLE [Concomitant]
     Dosage: 1 DF, UNK
     Route: 048

REACTIONS (2)
  - GAIT DISTURBANCE [None]
  - PARALYSIS [None]
